FAERS Safety Report 15937614 (Version 1)
Quarter: 2019Q1

REPORT INFORMATION
  Report Type: Spontaneous
  Country: US (occurrence: US)
  Receive Date: 20190208
  Receipt Date: 20190208
  Transmission Date: 20190417
  Serious: No
  Sender: FDA-Public Use
  Company Number: US-ICU MEDICAL, INC.-ICU2018US00028

PATIENT
  Age: 71 Year
  Sex: Male

DRUGS (2)
  1. CISPLATIN. [Suspect]
     Active Substance: CISPLATIN
     Indication: CHEMOTHERAPY
     Dosage: UNK
     Route: 042
     Dates: start: 20180724, end: 20180724
  2. 0.9% SODIUM CHLORIDE INJECTION USP (250 ML) [Suspect]
     Active Substance: SODIUM CHLORIDE
     Indication: CHEMOTHERAPY
     Dosage: 250 MILLILITER
     Route: 042
     Dates: start: 20180724, end: 20180724

REACTIONS (1)
  - Accidental exposure to product [Recovered/Resolved]

NARRATIVE: CASE EVENT DATE: 20180724
